FAERS Safety Report 10307465 (Version 2)
Quarter: 2014Q3

REPORT INFORMATION
  Report Type: Report from Study
  Country: US (occurrence: US)
  Receive Date: 20140716
  Receipt Date: 20140828
  Transmission Date: 20150326
  Serious: Yes (Death, Hospitalization, Other)
  Sender: FDA-Public Use
  Company Number: PHEH2014US014048

PATIENT
  Age: 44 Year
  Sex: Male

DRUGS (4)
  1. ZOMETA [Suspect]
     Active Substance: ZOLEDRONIC ACID
     Indication: METASTASES TO BONE
  2. INLYTA [Concomitant]
     Active Substance: AXITINIB
     Indication: METASTASES TO BONE
  3. INLYTA [Concomitant]
     Active Substance: AXITINIB
     Indication: RENAL CELL CARCINOMA
     Dosage: 5 MG, BID
  4. ZOMETA [Suspect]
     Active Substance: ZOLEDRONIC ACID
     Indication: RENAL CELL CARCINOMA
     Dosage: 5 MG, QMO
     Route: 042

REACTIONS (11)
  - Lung disorder [Unknown]
  - Death [Fatal]
  - Heart rate increased [Not Recovered/Not Resolved]
  - Hepatic failure [Unknown]
  - Fluid retention [Unknown]
  - Biliary neoplasm [Unknown]
  - Nausea [Unknown]
  - Fatigue [Unknown]
  - Blood pressure decreased [Not Recovered/Not Resolved]
  - Pancreatic neoplasm [Unknown]
  - Blood calcium increased [Unknown]

NARRATIVE: CASE EVENT DATE: 20140623
